FAERS Safety Report 6791381-2 (Version None)
Quarter: 2010Q2

REPORT INFORMATION
  Report Type: 
  Country: None (occurrence: None)
  Receive Date: 20100624
  Receipt Date: 20100426
  Transmission Date: 20101027
  Serious: Yes (Life-Threatening, Other)
  Sender: FDA-Public Use
  Company Number: RU-ELI_LILLY_AND_COMPANY-RU201006006140

PATIENT
  Age: 10 Year
  Sex: Female

DRUGS (3)
  1. HUMALOG [Suspect]
     Indication: DIABETES MELLITUS
     Dosage: AFTER BREAKFAST - 10 UNITS, AFTER LUNCH - 11 UNITS, AFTER DINNER - 10 UNITS, + 3 UNITS RESET.
     Route: 058
     Dates: start: 20100413, end: 20100415
  2. HUMALOG [Suspect]
     Dosage: UNK, UNKNOWN
     Route: 058
     Dates: start: 20100416
  3. INSULIN GLARGINE [Concomitant]
     Indication: DIABETES MELLITUS
     Dosage: UNK, UNKNOWN
     Route: 058
     Dates: start: 20100413, end: 20100415

REACTIONS (5)
  - CONVULSION [None]
  - DRUG INEFFECTIVE [None]
  - EXPIRED DRUG ADMINISTERED [None]
  - HYPERGLYCAEMIA [None]
  - INCORRECT PRODUCT STORAGE [None]
